FAERS Safety Report 18753428 (Version 1)
Quarter: 2021Q1

REPORT INFORMATION
  Report Type: Spontaneous
  Country: US (occurrence: US)
  Receive Date: 20210118
  Receipt Date: 20210118
  Transmission Date: 20210419
  Serious: No
  Sender: FDA-Public Use
  Company Number: US-TEVA-2021-US-1868770

PATIENT
  Age: 88 Year
  Sex: Female

DRUGS (1)
  1. ACTAVIS LIDOCAINE PATCH 5 PERCENT [Suspect]
     Active Substance: LIDOCAINE
     Indication: FEMUR FRACTURE
     Route: 062
     Dates: start: 20210102

REACTIONS (2)
  - Application site irritation [Not Recovered/Not Resolved]
  - Product prescribing error [Unknown]
